FAERS Safety Report 15341784 (Version 1)
Quarter: 2018Q3

REPORT INFORMATION
  Report Type: Spontaneous
  Country: DE (occurrence: DE)
  Receive Date: 20180901
  Receipt Date: 20180901
  Transmission Date: 20181010
  Serious: Yes (Other)
  Sender: FDA-Public Use
  Company Number: DE-AUROBINDO-AUR-APL-2018-043652

PATIENT
  Sex: Male

DRUGS (1)
  1. ALFUZOSIN [Suspect]
     Active Substance: ALFUZOSIN
     Indication: PROSTATIC DISORDER
     Dosage: UNK
     Route: 065

REACTIONS (7)
  - Face and mouth X-ray abnormal [Unknown]
  - Bile output abnormal [Unknown]
  - Epistaxis [Unknown]
  - Chromaturia [Unknown]
  - Bile duct stone [Unknown]
  - Transaminases increased [Recovered/Resolved]
  - Parosmia [Unknown]

NARRATIVE: CASE EVENT DATE: 2018
